FAERS Safety Report 5084200-6 (Version None)
Quarter: 2006Q3

REPORT INFORMATION
  Report Type: 
  Country: None (occurrence: None)
  Receive Date: 20060821
  Receipt Date: 20050922
  Transmission Date: 20061208
  Serious: No
  Sender: FDA-Public Use
  Company Number: US-BRISTOL-MYERS SQUIBB COMPANY-13119581

PATIENT
  Age: 55 Year
  Sex: Female
  Weight: 57 kg

DRUGS (2)
  1. GATIFLOXACIN TABS [Suspect]
     Indication: CHEST DISCOMFORT
     Route: 048
     Dates: start: 20050907, end: 20050907
  2. SEREVENT [Concomitant]
     Route: 055

REACTIONS (6)
  - ABDOMINAL DISCOMFORT [None]
  - DIARRHOEA [None]
  - DIZZINESS [None]
  - NAUSEA [None]
  - VISION BLURRED [None]
  - VOMITING [None]
